FAERS Safety Report 14239622 (Version 1)
Quarter: 2017Q4

REPORT INFORMATION
  Report Type: Spontaneous
  Country: US (occurrence: None)
  Receive Date: 20171130
  Receipt Date: 20171130
  Transmission Date: 20180321
  Serious: Yes (Hospitalization)
  Sender: FDA-Public Use
  Company Number: None

PATIENT
  Age: 66 Year
  Sex: Male
  Weight: 37.84 kg

DRUGS (21)
  1. LENALIDOMIDE (CC-5013) [Suspect]
     Active Substance: LENALIDOMIDE
     Dates: end: 20171116
  2. NYSTATIN. [Concomitant]
     Active Substance: NYSTATIN
  3. OXYCODONE [Concomitant]
     Active Substance: OXYCODONE
  4. ASCORBIC ACID. [Concomitant]
     Active Substance: ASCORBIC ACID
  5. ASPIRIN. [Concomitant]
     Active Substance: ASPIRIN
  6. PYRIDOXINE HCL (VITAMIN B-6) [Concomitant]
  7. ALLOPURINOL. [Concomitant]
     Active Substance: ALLOPURINOL
  8. LEVOTHYROXINE. [Concomitant]
     Active Substance: LEVOTHYROXINE
  9. MELOXICAM. [Concomitant]
     Active Substance: MELOXICAM
  10. VELCADE [Suspect]
     Active Substance: BORTEZOMIB
     Dates: end: 20171106
  11. DEXAMETHASONE. [Suspect]
     Active Substance: DEXAMETHASONE
     Dates: end: 20171114
  12. ONDANSETRON [Concomitant]
     Active Substance: ONDANSETRON
  13. TAMSULOSIN [Concomitant]
     Active Substance: TAMSULOSIN
  14. ACYCLOVIR. [Concomitant]
     Active Substance: ACYCLOVIR
  15. CALCIUM CAR-CHOLECALCIFEROL [Concomitant]
  16. OMEPRAZOLE. [Concomitant]
     Active Substance: OMEPRAZOLE
  17. PROCHLORPERAZINE. [Concomitant]
     Active Substance: PROCHLORPERAZINE
  18. TRAZODONE [Concomitant]
     Active Substance: TRAZODONE HYDROCHLORIDE
  19. FETZIMA [Concomitant]
     Active Substance: LEVOMILNACIPRAN HYDROCHLORIDE
  20. MULTIPLE VITAMIN (MULTIVITAMIN) [Concomitant]
  21. ZOLPIDEM [Concomitant]
     Active Substance: ZOLPIDEM\ZOLPIDEM TARTRATE

REACTIONS (7)
  - Streptococcus test positive [None]
  - Chills [None]
  - Blood culture positive [None]
  - Injection site cellulitis [None]
  - Rash [None]
  - Thrombocytopenia [None]
  - Neutropenia [None]

NARRATIVE: CASE EVENT DATE: 20171116
